FAERS Safety Report 24537319 (Version 4)
Quarter: 2024Q4

REPORT INFORMATION
  Report Type: Report from Study
  Country: NL (occurrence: NL)
  Receive Date: 20241022
  Receipt Date: 20241112
  Transmission Date: 20250114
  Serious: Yes (Hospitalization)
  Sender: ABBVIE
  Company Number: NL-ABBVIE-5943197

PATIENT
  Age: 71 Year
  Sex: Male

DRUGS (18)
  1. CARBIDOPA\LEVODOPA [Suspect]
     Active Substance: CARBIDOPA\LEVODOPA
     Indication: Parkinson^s disease
     Dosage: BIR:0.80ML/H; HIR:0.80ML/H; LIR:0.40ML/H; ED:0.20ML, REMAINS AT 24 HOURS
     Route: 058
     Dates: start: 20240923, end: 20240923
  2. CARBIDOPA\LEVODOPA [Suspect]
     Active Substance: CARBIDOPA\LEVODOPA
     Dosage: BIR: 0.83ML/H, LIR: 0.51ML/H, ED: 0.30ML, REMAINS AT 24 HOURS
     Route: 058
     Dates: start: 20241031
  3. CARBIDOPA\LEVODOPA [Suspect]
     Active Substance: CARBIDOPA\LEVODOPA
     Dosage: BIR:0.97ML/H, REMAINS AT 24 HOURS,LAST DOSE ADMINISTERED: OCT 2024
     Route: 058
     Dates: start: 20241001
  4. CARBIDOPA\LEVODOPA [Suspect]
     Active Substance: CARBIDOPA\LEVODOPA
     Dosage: BIR:0.89ML/H; LIR:0.45ML/H; ED:0.30ML; REMAINS AT 24 HOURS
     Route: 058
     Dates: start: 20240924, end: 20240925
  5. CARBIDOPA\LEVODOPA [Suspect]
     Active Substance: CARBIDOPA\LEVODOPA
     Dosage: BIR:0.95ML/H; LIR:0.57ML/H; ED:0.30ML, REMAINS AT 24 HOURS, LAST DOSE ADMINISTERED: 2024
     Route: 058
     Dates: start: 202409
  6. CARBIDOPA\LEVODOPA [Suspect]
     Active Substance: CARBIDOPA\LEVODOPA
     Dosage: LD: 0.0 ML, BIR: 0.83ML/H, HIR: 0.83ML/H, LIR: 0.48ML/H, ED: 0.30ML, REMAINS AT 24 HOURS
     Route: 058
     Dates: start: 20241029, end: 20241031
  7. CARBIDOPA\LEVODOPA [Suspect]
     Active Substance: CARBIDOPA\LEVODOPA
     Dosage: BIR:0.92ML/H; LIR:0.48ML/H; ED:0.30ML; REMAINS AT 24 HOURS
     Route: 058
     Dates: start: 20240925, end: 20240926
  8. CARBIDOPA\LEVODOPA [Suspect]
     Active Substance: CARBIDOPA\LEVODOPA
     Dosage: LIR:0.52ML/H; REMAINS AT 24 HOURS
     Route: 058
     Dates: start: 20241003, end: 20241008
  9. CARBIDOPA\LEVODOPA [Suspect]
     Active Substance: CARBIDOPA\LEVODOPA
     Dosage: LD: 0.0 ML, BIR: 0.81ML/H, HIR: 0.81ML/H, LIR: 0.49ML/H, ED: 0.30ML, REMAINS AT 24 HOURS
     Route: 058
     Dates: start: 20241024, end: 20241029
  10. CARBIDOPA\LEVODOPA [Suspect]
     Active Substance: CARBIDOPA\LEVODOPA
     Dosage: BIR: 0.83ML/H, HIR: 0.83ML/H, LIR: 0.52ML/H, ED: 0.30ML; REMAINS AT 24 HOURS
     Route: 058
     Dates: start: 20241008, end: 20241010
  11. CARBIDOPA\LEVODOPA [Suspect]
     Active Substance: CARBIDOPA\LEVODOPA
     Dosage: BIR:0.83ML/H; LIR:0.42ML/H; ED:0.20ML; REMAINS AT 24 HOURS
     Route: 058
     Dates: start: 20240923, end: 20240924
  12. CARBIDOPA\LEVODOPA [Suspect]
     Active Substance: CARBIDOPA\LEVODOPA
     Dosage: BIR:0.95ML/H, REMAINS AT 24 HOURS, LAST DOSE ADMINISTERED: OCT 2024
     Route: 058
     Dates: start: 20241002
  13. CARBIDOPA\LEVODOPA [Suspect]
     Active Substance: CARBIDOPA\LEVODOPA
     Dosage: BIR:0.95ML/H; LIR:0.54ML/H; ED:0.30ML; GOES TO 24 HOURS
     Route: 058
     Dates: start: 202409, end: 202409
  14. CARBIDOPA\LEVODOPA [Suspect]
     Active Substance: CARBIDOPA\LEVODOPA
     Dosage: LD: 0.0 ML, BIR: 0.83ML/H, HIR: 0.83ML/H, LIR: 0.48ML/H, ED: 0.30ML, REMAINS AT 24 HOURS
     Route: 058
     Dates: start: 20241011, end: 20241024
  15. CARBIDOPA\LEVODOPA [Suspect]
     Active Substance: CARBIDOPA\LEVODOPA
     Dosage: LD: 0.0 ML, BIR: 0.83ML/H, HIR: 0.83ML/H, LIR: 0.48ML/H, ED: 0.30ML, REMAINS AT 24 HOURS
     Route: 058
     Dates: start: 20241010, end: 20241011
  16. CARBIDOPA\LEVODOPA [Suspect]
     Active Substance: CARBIDOPA\LEVODOPA
     Dosage: LIR: 0.51ML/H, BIR:0.95ML/H, ED:0.30ML; REMAINS AT 24 HOURS, LAST DOSE ADMINISTERED: SEP 2024
     Route: 058
     Dates: start: 20240926
  17. CARBIDOPA\LEVODOPA [Concomitant]
     Active Substance: CARBIDOPA\LEVODOPA
     Indication: Parkinson^s disease
     Route: 050
     Dates: end: 20240923
  18. CLOZAPINE [Concomitant]
     Active Substance: CLOZAPINE
     Indication: Product used for unknown indication
     Dosage: TIME INTERVAL: AS NECESSARY

REACTIONS (32)
  - Rehabilitation therapy [Not Recovered/Not Resolved]
  - On and off phenomenon [Recovered/Resolved]
  - Unevaluable event [Not Recovered/Not Resolved]
  - Dyskinesia [Not Recovered/Not Resolved]
  - Balance disorder [Not Recovered/Not Resolved]
  - Therapeutic product effect incomplete [Not Recovered/Not Resolved]
  - Restlessness [Not Recovered/Not Resolved]
  - Cognitive disorder [Recovered/Resolved]
  - Psychotic disorder [Recovering/Resolving]
  - Infusion site erythema [Unknown]
  - Delusion [Not Recovered/Not Resolved]
  - Excessive granulation tissue [Unknown]
  - Behaviour disorder [Not Recovered/Not Resolved]
  - Suture related complication [Unknown]
  - Pain [Unknown]
  - Discomfort [Unknown]
  - Therapeutic product effect variable [Not Recovered/Not Resolved]
  - Skin disorder [Unknown]
  - Hallucination [Recovered/Resolved]
  - Infusion site discharge [Unknown]
  - Confusional state [Not Recovered/Not Resolved]
  - Delusion [Recovered/Resolved]
  - Hallucination [Recovered/Resolved]
  - On and off phenomenon [Not Recovered/Not Resolved]
  - Therapeutic response shortened [Not Recovered/Not Resolved]
  - Mobility decreased [Not Recovered/Not Resolved]
  - Fluid intake reduced [Not Recovered/Not Resolved]
  - Hypophagia [Not Recovered/Not Resolved]
  - Overdose [Recovering/Resolving]
  - Freezing phenomenon [Not Recovered/Not Resolved]
  - Wheelchair user [Unknown]
  - Unevaluable event [Not Recovered/Not Resolved]

NARRATIVE: CASE EVENT DATE: 20240101
